FAERS Safety Report 24155658 (Version 1)
Quarter: 2024Q3

REPORT INFORMATION
  Report Type: Spontaneous
  Country: CN (occurrence: CN)
  Receive Date: 20240731
  Receipt Date: 20240731
  Transmission Date: 20241016
  Serious: Yes (Other)
  Sender: ASTELLAS
  Company Number: CN-ASTELLAS-2024US021314

PATIENT
  Sex: Male

DRUGS (1)
  1. PROGRAF [Suspect]
     Active Substance: TACROLIMUS
     Indication: Product used for unknown indication
     Dosage: 1 DF, ONCE DAILY (1/DAY)
     Route: 048
     Dates: start: 20240426, end: 20240426

REACTIONS (2)
  - Nephrolithiasis [Unknown]
  - Urinary occult blood [Unknown]

NARRATIVE: CASE EVENT DATE: 20240501
